FAERS Safety Report 4992577-2 (Version None)
Quarter: 2006Q1

REPORT INFORMATION
  Report Type: 
  Country: None (occurrence: None)
  Receive Date: 20060313
  Receipt Date: 20051202
  Transmission Date: 20060701
  Serious: Yes (Hospitalization)
  Sender: FDA-Public Use
  Company Number: PHEH2005US13154

PATIENT
  Age: 45 Year
  Sex: Female

DRUGS (2)
  1. TRILEPTAL [Suspect]
     Indication: PARTIAL SEIZURES
     Dosage: ORAL; 450 MG, BID, ORAL
     Route: 048
     Dates: start: 20031101, end: 20050101
  2. TRILEPTAL [Suspect]
     Indication: PARTIAL SEIZURES
     Dosage: ORAL; 450 MG, BID, ORAL
     Route: 048
     Dates: start: 20050101, end: 20051101

REACTIONS (2)
  - BLOOD SODIUM DECREASED [None]
  - CONVULSION [None]
